FAERS Safety Report 10897417 (Version 1)
Quarter: 2015Q1

REPORT INFORMATION
  Report Type: Spontaneous
  Country: US (occurrence: US)
  Receive Date: 20150309
  Receipt Date: 20150309
  Transmission Date: 20150721
  Serious: No
  Sender: FDA-Public Use
  Company Number: US-PFIZER INC-2015084774

PATIENT
  Age: 43 Year
  Sex: Female
  Weight: 77 kg

DRUGS (1)
  1. ADVIL [Suspect]
     Active Substance: IBUPROFEN
     Indication: PLANTAR FASCIITIS
     Dosage: 200 MG, ONE EVERY FOUR HOUR DURING THE DAY TIME ONLY
     Dates: start: 20150303

REACTIONS (2)
  - Product use issue [Unknown]
  - Rash pruritic [Not Recovered/Not Resolved]

NARRATIVE: CASE EVENT DATE: 20150303
